FAERS Safety Report 7193807-1 (Version None)
Quarter: 2010Q4

REPORT INFORMATION
  Report Type: 
  Country: None (occurrence: None)
  Receive Date: 20101223
  Receipt Date: 20101214
  Transmission Date: 20110411
  Serious: Yes (Death, Hospitalization)
  Sender: FDA-Public Use
  Company Number: US-CELGENEUS-163-21880-10101501

PATIENT
  Sex: Male

DRUGS (13)
  1. REVLIMID [Suspect]
     Indication: MULTIPLE MYELOMA
     Route: 048
     Dates: start: 20080227, end: 20100701
  2. LEVAQUIN [Concomitant]
     Route: 048
  3. ASCORBIC ACID [Concomitant]
     Dosage: 1
     Route: 048
  4. PROSCAR [Concomitant]
     Route: 048
  5. NOVOLOG [Concomitant]
     Dosage: 10 UNITS
     Route: 058
  6. LANTUS [Concomitant]
     Dosage: 25 UNITS
     Route: 058
  7. IMODIUM [Concomitant]
     Route: 048
  8. NEUTRA-PHOS [Concomitant]
     Route: 048
  9. POTASSIUM [Concomitant]
     Route: 065
  10. LYRICA [Concomitant]
     Route: 048
  11. FLOMAX [Concomitant]
     Route: 048
  12. ZINC SULFATE [Concomitant]
     Dosage: 220
     Route: 048
  13. DARVOCET-N 100 [Concomitant]
     Indication: PAIN
     Dosage: 100  (1)
     Route: 048

REACTIONS (1)
  - PANCREATIC CARCINOMA [None]
